FAERS Safety Report 22032764 (Version 1)
Quarter: 2023Q1

REPORT INFORMATION
  Report Type: Other
  Country: MX (occurrence: None)
  Receive Date: 20230224
  Receipt Date: 20230224
  Transmission Date: 20230417
  Serious: Yes (Other)
  Sender: FDA-Public Use
  Company Number: MX-ROCHE-3291192

PATIENT
  Sex: Female

DRUGS (1)
  1. OCREVUS [Suspect]
     Active Substance: OCRELIZUMAB
     Indication: Multiple sclerosis
     Dosage: OCRELIZUMAB VIAL 300MG/10ML (30MG/ML)
     Route: 042
     Dates: start: 20230216

REACTIONS (5)
  - Hepatitis B surface antibody positive [Unknown]
  - Globulins decreased [Unknown]
  - Blood glucose increased [Unknown]
  - Haemoglobin increased [Unknown]
  - Eosinophil count increased [Unknown]
